FAERS Safety Report 12298658 (Version 3)
Quarter: 2016Q3

REPORT INFORMATION
  Report Type: Spontaneous
  Country: US (occurrence: US)
  Receive Date: 20160425
  Receipt Date: 20160721
  Transmission Date: 20161109
  Serious: No
  Sender: FDA-Public Use
  Company Number: US-HORIZON-RAV-0082-2016

PATIENT
  Age: 53 Year
  Sex: Female

DRUGS (1)
  1. RAVICTI [Suspect]
     Active Substance: GLYCEROL PHENYLBUTYRATE
     Indication: UREA CYCLE ENZYME DEFICIENCY
     Dosage: 7.5 ML THREE TIMES DAILY (22.5 ML DAILY)
     Dates: start: 201402

REACTIONS (2)
  - Dermatitis allergic [Unknown]
  - Off label use [Unknown]

NARRATIVE: CASE EVENT DATE: 201604
